FAERS Safety Report 10681270 (Version 3)
Quarter: 2016Q1

REPORT INFORMATION
  Report Type: Spontaneous
  Country: GB (occurrence: GB)
  Receive Date: 20141230
  Receipt Date: 20160324
  Transmission Date: 20160525
  Serious: Yes (Other)
  Sender: FDA-Public Use
  Company Number: GB-GILEAD-2014-0128432

PATIENT
  Age: 39 Year
  Sex: Male

DRUGS (4)
  1. BECLOMETHASONE                     /00212602/ [Concomitant]
     Active Substance: BECLOMETHASONE
     Indication: NASAL CONGESTION
     Dosage: UNK
     Route: 045
  2. HYDROCORTISONE. [Concomitant]
     Active Substance: HYDROCORTISONE
     Indication: NASAL CONGESTION
     Dosage: 10 MG, BID
     Route: 065
  3. STRIBILD [Suspect]
     Active Substance: COBICISTAT\ELVITEGRAVIR\EMTRICITABINE\TENOFOVIR DISOPROXIL FUMARATE
     Indication: HIV INFECTION
     Dosage: UNK
     Route: 065
     Dates: start: 201403
  4. FLUTICASONE [Interacting]
     Active Substance: FLUTICASONE\FLUTICASONE PROPIONATE
     Indication: NASAL CONGESTION
     Dosage: 800 UG, UNK
     Route: 045

REACTIONS (2)
  - Adrenal suppression [Recovered/Resolved]
  - Drug interaction [Recovered/Resolved]

NARRATIVE: CASE EVENT DATE: 201406
